FAERS Safety Report 18806515 (Version 1)
Quarter: 2021Q1

REPORT INFORMATION
  Report Type: Report from Study
  Country: MX (occurrence: MX)
  Receive Date: 20210129
  Receipt Date: 20210129
  Transmission Date: 20210419
  Serious: Yes (Other)
  Sender: FDA-Public Use
  Company Number: MX-GILEAD-2021-0514771

PATIENT
  Age: 30 Year
  Sex: Male

DRUGS (2)
  1. EFAVIRENZ. [Concomitant]
     Active Substance: EFAVIRENZ
  2. EMTRICITABINE;TENOFOVIR DISOPROXIL FUMARATE [Suspect]
     Active Substance: EMTRICITABINE\TENOFOVIR DISOPROXIL FUMARATE
     Indication: HIV INFECTION
     Dosage: 1 DOSAGE FORM, QD
     Route: 048
     Dates: start: 201706, end: 201901

REACTIONS (4)
  - Somnolence [Unknown]
  - Hallucination [Unknown]
  - Product use issue [Unknown]
  - Poor quality sleep [Unknown]
